FAERS Safety Report 9519248 (Version 1)
Quarter: 2013Q3

REPORT INFORMATION
  Report Type: Spontaneous
  Country: US (occurrence: None)
  Receive Date: 20130911
  Receipt Date: 20130911
  Transmission Date: 20140515
  Serious: Yes (Other)
  Sender: FDA-Public Use
  Company Number: None

PATIENT
  Age: 80 Year
  Sex: 0

DRUGS (4)
  1. LEVOFLOXACIN [Suspect]
     Indication: ERYTHEMA
     Route: 048
     Dates: start: 20130815, end: 20130817
  2. LEVOFLOXACIN [Suspect]
     Indication: BODY TEMPERATURE INCREASED
     Route: 048
     Dates: start: 20130815, end: 20130817
  3. LEVOFLOXACIN [Suspect]
     Indication: CELLULITIS
     Route: 048
     Dates: start: 20130815, end: 20130817
  4. LEVOFLOXACIN [Suspect]
     Indication: FEELING HOT
     Route: 048
     Dates: start: 20130815, end: 20130817

REACTIONS (4)
  - Oral pain [None]
  - Pain [None]
  - Aphagia [None]
  - Pain in extremity [None]
